FAERS Safety Report 5234075-7 (Version None)
Quarter: 2007Q1

REPORT INFORMATION
  Report Type: 
  Country: None (occurrence: None)
  Receive Date: 20070208
  Receipt Date: 20070129
  Transmission Date: 20070707
  Serious: Yes (Other)
  Sender: FDA-Public Use
  Company Number: US-ABBOTT-06P-163-0330112-00

PATIENT
  Sex: Male
  Weight: 15.5 kg

DRUGS (6)
  1. OMNICEF [Suspect]
     Indication: OTITIS MEDIA
     Dosage: 250MG/5ML
     Route: 048
     Dates: start: 20060403, end: 20060405
  2. PARACETAMOL [Concomitant]
     Indication: DRUG USE FOR UNKNOWN INDICATION
  3. PEDIATRIC COUGH AND COLD (OTC) [Concomitant]
     Indication: DRUG USE FOR UNKNOWN INDICATION
  4. DTAP VACCINE [Concomitant]
     Indication: IMMUNISATION
     Route: 050
     Dates: start: 20060809, end: 20060809
  5. M-M-R II [Concomitant]
     Indication: IMMUNISATION
     Route: 050
     Dates: start: 20060809, end: 20060809
  6. POLIOVIRUS IPV BOOSTER [Concomitant]
     Indication: IMMUNISATION
     Route: 050
     Dates: start: 20060809, end: 20060809

REACTIONS (16)
  - ABNORMAL BEHAVIOUR [None]
  - CONFUSIONAL STATE [None]
  - COUGH [None]
  - DISTURBANCE IN ATTENTION [None]
  - EXCORIATION [None]
  - FALL [None]
  - INCOHERENT [None]
  - MANIA [None]
  - MENTAL STATUS CHANGES [None]
  - OTITIS MEDIA [None]
  - POOR QUALITY SLEEP [None]
  - PSYCHOMOTOR HYPERACTIVITY [None]
  - REPETITIVE SPEECH [None]
  - RESPIRATORY TRACT CONGESTION [None]
  - SKIN PAPILLOMA [None]
  - UPPER RESPIRATORY TRACT INFECTION [None]
